FAERS Safety Report 9254453 (Version 1)
Quarter: 2013Q2

REPORT INFORMATION
  Report Type: Spontaneous
  Country: US (occurrence: US)
  Receive Date: 20130425
  Receipt Date: 20130425
  Transmission Date: 20140414
  Serious: No
  Sender: FDA-Public Use
  Company Number: US-B.I. PHARMACEUTICALS,INC./RIDGEFIELD-2013-BI-10453BP

PATIENT
  Age: 87 Year
  Sex: Male

DRUGS (1)
  1. SPIRIVA [Suspect]
     Indication: WHEEZING
     Dosage: 18 MCG
     Route: 048
     Dates: start: 20130412, end: 20130413

REACTIONS (5)
  - Insomnia [Recovered/Resolved]
  - Eye pain [Recovered/Resolved]
  - Dry mouth [Recovered/Resolved]
  - Decreased appetite [Recovered/Resolved]
  - Wheezing [Recovered/Resolved]
